FAERS Safety Report 6829755-3 (Version None)
Quarter: 2010Q3

REPORT INFORMATION
  Report Type: 
  Country: None (occurrence: None)
  Receive Date: 20100709
  Receipt Date: 20071107
  Transmission Date: 20110219
  Serious: No
  Sender: FDA-Public Use
  Company Number: US-PFIZER INC-2007014905

PATIENT
  Sex: Female
  Weight: 70.31 kg

DRUGS (5)
  1. CHANTIX [Suspect]
     Indication: SMOKING CESSATION THERAPY
     Dates: start: 20070126
  2. HYDROCHLOROTHIAZIDE [Concomitant]
     Indication: HYPERTENSION
  3. LIPITOR [Concomitant]
  4. POTASSIUM [Concomitant]
  5. CALCIUM CARBONATE [Concomitant]

REACTIONS (3)
  - DRUG DOSE OMISSION [None]
  - FATIGUE [None]
  - HYPERSOMNIA [None]
